FAERS Safety Report 16049780 (Version 1)
Quarter: 2019Q1

REPORT INFORMATION
  Report Type: Spontaneous
  Country: US (occurrence: US)
  Receive Date: 20190307
  Receipt Date: 20190307
  Transmission Date: 20190418
  Serious: Yes (Death, Other)
  Sender: FDA-Public Use
  Company Number: US-009507513-1903USA002038

PATIENT
  Age: 57 Year
  Sex: Female

DRUGS (4)
  1. TEMAZEPAM. [Suspect]
     Active Substance: TEMAZEPAM
     Dosage: ROUTE: INGESTION
     Route: 048
  2. CYCLOBENZAPRINE HYDROCHLORIDE. [Suspect]
     Active Substance: CYCLOBENZAPRINE HYDROCHLORIDE
     Dosage: ROUTE: INGESTION
     Route: 048
  3. REMERON [Suspect]
     Active Substance: MIRTAZAPINE
     Dosage: ROUTE: INGESTION
     Route: 048
  4. AMLODIPINE [Suspect]
     Active Substance: AMLODIPINE BESYLATE
     Dosage: ROUTE: INGESTION
     Route: 048

REACTIONS (1)
  - Suspected suicide attempt [Fatal]
